FAERS Safety Report 9039561 (Version 1)
Quarter: 2013Q1

REPORT INFORMATION
  Report Type: Report from Study
  Country: US (occurrence: US)
  Receive Date: 20130129
  Receipt Date: 20130129
  Transmission Date: 20140127
  Serious: No
  Sender: FDA-Public Use
  Company Number: US-ABBOTT-12P-163-0941500-00

PATIENT
  Age: 80 Year
  Sex: Female

DRUGS (19)
  1. HUMIRA 40 MG/0.8 ML PEN [Suspect]
     Indication: PSORIATIC ARTHROPATHY
     Dosage: ONE PEN WEEKLY
     Dates: end: 20120525
  2. SYNTHROID [Concomitant]
     Indication: THYROID DISORDER
  3. COUMADIN [Concomitant]
     Indication: PRODUCT USED FOR UNKNOWN INDICATION
     Dosage: 12.5MG FOUR TIMES A WEEK
     Route: 048
  4. COUMADIN [Concomitant]
     Dosage: 10MG THREE TIMES A WEEK
  5. POTASSIUM [Concomitant]
     Indication: RENAL IMPAIRMENT
     Dosage: 400MG DAILY
  6. LASIX [Concomitant]
     Indication: PRODUCT USED FOR UNKNOWN INDICATION
     Dosage: 20MG DAILY
  7. ALLEGRA [Concomitant]
     Indication: PRODUCT USED FOR UNKNOWN INDICATION
     Dosage: 180MG DAILY
  8. AMOXICILLIN [Concomitant]
     Indication: PRODUCT USED FOR UNKNOWN INDICATION
     Dosage: 2000MG PRIOR TO DENTIST
  9. ZOLOFT [Concomitant]
     Indication: DEPRESSION
     Dosage: 200MG DAILY
  10. FIORICET [Concomitant]
     Indication: HEADACHE
     Dosage: EVERY COUPLE OF DAYS
  11. LIPITOR [Concomitant]
     Indication: BLOOD CHOLESTEROL
     Dosage: 20MG DAILY
  12. PERCOCET [Concomitant]
     Indication: PAIN
     Dosage: 10/650 UP TO FOUR TIMES A DAY AS NEEDED
  13. VITAMINS [Concomitant]
     Indication: PRODUCT USED FOR UNKNOWN INDICATION
  14. MAGNESIUM [Concomitant]
     Indication: RENAL IMPAIRMENT
     Dosage: 400MG DAILY
     Route: 048
  15. ALDACTONE [Concomitant]
     Indication: RENAL IMPAIRMENT
     Dosage: 25 MG DAILY
     Route: 048
  16. ASA [Concomitant]
     Indication: CARDIOVASCULAR EVENT PROPHYLAXIS
     Dosage: 81MG DAILY
     Route: 048
  17. TRAZODONE [Concomitant]
     Indication: INSOMNIA
     Dosage: 50MG DAILY AT PM
  18. SOTALOL [Concomitant]
     Indication: CARDIOVASCULAR EVENT PROPHYLAXIS
     Dosage: 80MG 1/2 PILL IN AM
  19. SOTALOL [Concomitant]
     Dosage: 1/2 PILL IN PM

REACTIONS (1)
  - Skin discolouration [Not Recovered/Not Resolved]
